FAERS Safety Report 24453758 (Version 1)
Quarter: 2024Q4

REPORT INFORMATION
  Report Type: Other
  Country: FR (occurrence: FR)
  Receive Date: 20241017
  Receipt Date: 20241017
  Transmission Date: 20250114
  Serious: Yes (Hospitalization, Other)
  Sender: PRASCO
  Company Number: FR-Prasco Laboratories-PRAS20241201

PATIENT
  Age: 74 Year
  Sex: Female

DRUGS (1)
  1. DEXTROAMPHETAMINE SULFATE [Suspect]
     Active Substance: DEXTROAMPHETAMINE SULFATE
     Indication: Narcolepsy
     Dosage: UP TO 150 MG/24 HOURS FOR OVER A DECADE
     Route: 065

REACTIONS (9)
  - Dementia with Lewy bodies [Recovering/Resolving]
  - Drug abuse [Unknown]
  - Confusional state [Recovering/Resolving]
  - Psychomotor hyperactivity [Recovering/Resolving]
  - Hallucination, visual [Recovering/Resolving]
  - Persecutory delusion [Recovering/Resolving]
  - Cognitive disorder [Recovering/Resolving]
  - Loss of personal independence in daily activities [Recovering/Resolving]
  - Disturbance in attention [Recovering/Resolving]
